FAERS Safety Report 8077528-9 (Version None)
Quarter: 2012Q1

REPORT INFORMATION
  Report Type: 
  Country: None (occurrence: None)
  Receive Date: 20120127
  Receipt Date: 20120123
  Transmission Date: 20120608
  Serious: Yes (Hospitalization)
  Sender: FDA-Public Use
  Company Number: ZA-ABBOTT-12P-143-0896882-00

PATIENT
  Age: 74 Year
  Sex: Female

DRUGS (10)
  1. PHYSIOTENS [Concomitant]
     Indication: HYPERTENSION
     Route: 048
  2. COXFLAM [Concomitant]
     Indication: ANTIINFLAMMATORY THERAPY
     Route: 048
  3. GLUCOPHAGE [Concomitant]
     Indication: DIABETES MELLITUS
     Route: 048
  4. ATENOLOL [Concomitant]
     Indication: HYPERTENSION
     Route: 048
  5. TRAMADOL HYDROCHLORIDE/ACETAMINOPHEN [Concomitant]
     Indication: PAIN
     Route: 048
  6. NORVASC [Concomitant]
     Indication: HYPERTENSION
     Route: 048
  7. DIOVAN HCT [Concomitant]
     Indication: HYPERTENSION
     Route: 048
  8. SIMVASTATIN [Concomitant]
     Indication: HYPERLIPIDAEMIA
     Route: 048
  9. HUMIRA [Suspect]
     Indication: ANKYLOSING SPONDYLITIS
     Route: 058
     Dates: start: 20101001
  10. ASPIRIN [Concomitant]
     Indication: BLOOD DISORDER
     Route: 048

REACTIONS (3)
  - ANAEMIA [None]
  - CARDIAC FAILURE [None]
  - PULMONARY OEDEMA [None]
